FAERS Safety Report 8478326-4 (Version None)
Quarter: 2012Q2

REPORT INFORMATION
  Report Type: 
  Country: None (occurrence: None)
  Receive Date: 20120615
  Receipt Date: 20120608
  Transmission Date: 20120825
  Serious: Yes (Hospitalization)
  Sender: FDA-Public Use
  Company Number: 2012SP032121

PATIENT
  Age: 84 Year
  Sex: Female

DRUGS (9)
  1. PHYSIOTENS [Concomitant]
  2. OLMESARTAN MEDOXOMIL AND HYDROCHLOROTHIZIDE [Concomitant]
  3. FORLAX [Concomitant]
  4. ACETAMINOPHEN [Concomitant]
  5. TEMODAL [Suspect]
     Indication: METASTATIC MALIGNANT MELANOMA
     Dosage: 65 MG;QD;PARN
     Route: 051
     Dates: start: 20120216
  6. LEVOTHYROXINE SODIUM [Concomitant]
  7. CALCIPARINE [Concomitant]
  8. PREVISCAN (FLUINDIONE) [Concomitant]
     Indication: ATRIAL FIBRILLATION
     Dosage: 20 MG;;PO
     Route: 048
  9. PRAVASTATIN [Concomitant]

REACTIONS (3)
  - HAEMOGLOBIN DECREASED [None]
  - ATRIAL FIBRILLATION [None]
  - INTERNATIONAL NORMALISED RATIO INCREASED [None]
